FAERS Safety Report 5105794-8 (Version None)
Quarter: 2006Q3

REPORT INFORMATION
  Report Type: 
  Country: None (occurrence: None)
  Receive Date: 20060915
  Receipt Date: 20060906
  Transmission Date: 20061208
  Serious: Yes (Other)
  Sender: FDA-Public Use
  Company Number: ZA-ROCHE-462358

PATIENT
  Age: 12 Year
  Sex: Male
  Weight: 45 kg

DRUGS (2)
  1. ACCUTANE [Suspect]
     Indication: DRUG USE FOR UNKNOWN INDICATION
     Route: 048
     Dates: start: 20060815
  2. ACCUTANE [Suspect]
     Dosage: REDUCED DOSAGE AFTER THE EVENT OF NOSEBLEEDS.
     Route: 048
     Dates: start: 20060815

REACTIONS (3)
  - COUGH [None]
  - DYSPNOEA [None]
  - EPISTAXIS [None]
